FAERS Safety Report 8838674 (Version 3)
Quarter: 2012Q4

REPORT INFORMATION
  Report Type: Report from Study
  Country: US (occurrence: US)
  Receive Date: 20121012
  Receipt Date: 20121109
  Transmission Date: 20130627
  Serious: Yes (Hospitalization)
  Sender: FDA-Public Use
  Company Number: US-PFIZER INC-2012123942

PATIENT
  Age: 3 Year
  Sex: Female

DRUGS (12)
  1. DEXAMETHASONE SODIUM PHOSPHATE [Suspect]
     Indication: ACUTE LYMPHOCYTIC LEUKAEMIA
     Dosage: 3.5 mg, 2/1 Day, 2x/day
     Route: 048
     Dates: start: 20120416
  2. METHOTREXATE SODIUM [Suspect]
     Indication: ACUTE LYMPHOCYTIC LEUKAEMIA
     Dosage: 12 mg, ITRC
     Route: 037
     Dates: start: 20120423
  3. DAUNORUBICIN HYDROCHLORIDE [Suspect]
     Dosage: 18 mg, weekly
     Route: 042
     Dates: start: 20120416
  4. CYTARABINE [Suspect]
     Indication: ACUTE LYMPHOCYTIC LEUKAEMIA
     Dosage: 70 mg
     Route: 037
     Dates: start: 20120416
  5. DASATINIB [Suspect]
     Indication: ACUTE LYMPHOCYTIC LEUKAEMIA
     Dosage: 45 mg, 1 day
     Route: 048
     Dates: start: 20120430
  6. VINCRISTINE SULFATE [Suspect]
     Indication: ACUTE LYMPHOCYTIC LEUKAEMIA
     Dosage: 1.1 mg, 7 day, weekly
     Route: 042
     Dates: start: 20120416
  7. PEGASPARGASE [Suspect]
     Indication: ACUTE LYMPHOCYTIC LEUKAEMIA
     Dosage: 1775 IU
     Route: 042
     Dates: start: 20120419
  8. NYSTATIN [Concomitant]
     Dosage: UNK
     Dates: start: 20120422
  9. NYSTATIN [Concomitant]
     Dosage: UNK
     Dates: start: 20120729, end: 20120830
  10. ZOFRAN [Concomitant]
     Dosage: UNK
     Dates: start: 20120430, end: 20120820
  11. ZANTAC [Concomitant]
     Dosage: UNK
     Dates: start: 20120416, end: 20120820
  12. FUROSEMIDE [Concomitant]
     Dosage: UNK
     Dates: start: 20120427, end: 20120429

REACTIONS (2)
  - Neutropenia [Recovered/Resolved]
  - Device related infection [Recovered/Resolved]
